FAERS Safety Report 5130102-6 (Version None)
Quarter: 2006Q4

REPORT INFORMATION
  Report Type: 
  Country: None (occurrence: None)
  Receive Date: 20061013
  Receipt Date: 20060926
  Transmission Date: 20070319
  Serious: Yes (Death, Other)
  Sender: FDA-Public Use
  Company Number: IE200609006580

PATIENT
  Age: 84 Year
  Sex: Female

DRUGS (1)
  1. XIGRIS [Suspect]

REACTIONS (3)
  - HAEMORRHAGE INTRACRANIAL [None]
  - MENINGITIS PNEUMOCOCCAL [None]
  - THROMBOCYTOPENIA [None]
